FAERS Safety Report 21182753 (Version 1)
Quarter: 2022Q3

REPORT INFORMATION
  Report Type: Spontaneous
  Country: CN (occurrence: CN)
  Receive Date: 20220808
  Receipt Date: 20220808
  Transmission Date: 20221027
  Serious: Yes (Other)
  Sender: FDA-Public Use
  Company Number: None

PATIENT
  Age: 49 Year
  Sex: Female
  Weight: 56.9 kg

DRUGS (6)
  1. CYCLOPHOSPHAMIDE [Suspect]
     Active Substance: CYCLOPHOSPHAMIDE
     Indication: Breast cancer female
     Dosage: 0.9 G,ONCE A DAY,CYCLOPHOSPHAMIDE + 0.9% SODIUM CHLORIDE(250ML),INJECTION,THIRD COURSE OF CHEMOTHERA
     Route: 041
     Dates: start: 20220705, end: 20220705
  2. SODIUM CHLORIDE [Suspect]
     Active Substance: SODIUM CHLORIDE
     Indication: Medication dilution
     Dosage: 250 ML,ONCE A DAY,CYCLOPHOSPHAMIDE(0.9G) + 0.9% SODIUM CHLORIDE(250ML),THIRD COURSE OF CHEMOTHERAPY
     Route: 041
     Dates: start: 20220705, end: 20220705
  3. SODIUM CHLORIDE [Suspect]
     Active Substance: SODIUM CHLORIDE
     Dosage: 100 ML,ONCE A DAY,PACLITAXEL(400MG) + 0.9% SODIUM CHLORIDE(100ML),THIRD COURSE OF CHEMOTHERAPY
     Route: 041
     Dates: start: 20220705, end: 20220705
  4. DEXTROSE MONOHYDRATE [Suspect]
     Active Substance: DEXTROSE MONOHYDRATE
     Indication: Medication dilution
     Dosage: ONCE A DAY,DOXORUBICIN HYDROCHLORIDE(50MG) + 5% GLUCOSE,INJECTION,THIRD COURSE OF CHEMOTHERAPY
     Route: 041
     Dates: start: 20220705, end: 20220705
  5. PACLITAXEL [Suspect]
     Active Substance: PACLITAXEL
     Indication: Breast cancer female
     Dosage: 400MG,ONCE A DAY,PACLITAXEL(400MG) + 0.9% SODIUM CHLORIDE(100ML),THIRD COURSE OF CHEMOTHERAPY
     Route: 041
     Dates: start: 20220705, end: 20220705
  6. DOXORUBICIN HYDROCHLORIDE [Suspect]
     Active Substance: DOXORUBICIN HYDROCHLORIDE
     Indication: Breast cancer female
     Dosage: 50MG,ONCE A DAY,DOXORUBICIN HYDROCHLORIDE(50MG) + 5% GLUCOSE,THIRD COURSE OF CHEMOTHERAPY
     Route: 041
     Dates: start: 20220705, end: 20220705

REACTIONS (1)
  - Leukopenia [Recovering/Resolving]

NARRATIVE: CASE EVENT DATE: 20220720
